FAERS Safety Report 9138706 (Version 1)
Quarter: 2013Q1

REPORT INFORMATION
  Report Type: Spontaneous
  Country: TN (occurrence: TN)
  Receive Date: 20130305
  Receipt Date: 20130305
  Transmission Date: 20140127
  Serious: Yes (Death, Hospitalization, Other)
  Sender: FDA-Public Use
  Company Number: TN-BAYER-2013-026804

PATIENT
  Age: 80 Year
  Sex: Male
  Weight: 80 kg

DRUGS (2)
  1. ULTRAVIST [Suspect]
     Indication: ABDOMEN SCAN
     Dosage: INJECTION OF 100 CC OF ULTRAVIST  IN 2 VIALS OF 50CC
     Dates: start: 20130225, end: 20130225
  2. ULTRAVIST [Suspect]
     Indication: ABDOMEN SCAN
     Dosage: INJECTION OF 100 CC OF ULTRAVIST  IN 2 VIALS OF 50CC
     Dates: start: 20130225, end: 20130225

REACTIONS (3)
  - Cardio-respiratory arrest [Fatal]
  - Mendelson^s syndrome [None]
  - Peritonitis [None]
